FAERS Safety Report 6103149-0 (Version None)
Quarter: 2009Q1

REPORT INFORMATION
  Report Type: 
  Country: None (occurrence: None)
  Receive Date: 20090305
  Receipt Date: 20090220
  Transmission Date: 20090719
  Serious: Yes (Other)
  Sender: FDA-Public Use
  Company Number: AU-PFIZER INC-2009175868

PATIENT

DRUGS (6)
  1. XANAX [Suspect]
     Dosage: 0.5 MG, 3X/DAY
  2. ZOLOFT [Suspect]
     Indication: DEPRESSION
     Dosage: UNK
     Dates: start: 20090212
  3. ZOLOFT [Suspect]
     Indication: ANXIETY
  4. SEREPAX [Suspect]
     Dosage: FREQUENCY: NOCTE
  5. VALIUM [Concomitant]
  6. TEMAZEPAM [Concomitant]

REACTIONS (6)
  - ABDOMINAL DISCOMFORT [None]
  - ANXIETY [None]
  - DECREASED APPETITE [None]
  - INSOMNIA [None]
  - LUNG NEOPLASM MALIGNANT [None]
  - MALAISE [None]
